FAERS Safety Report 4885609-3 (Version None)
Quarter: 2006Q1

REPORT INFORMATION
  Report Type: 
  Country: None (occurrence: None)
  Receive Date: 20060119
  Receipt Date: 20051018
  Transmission Date: 20060701
  Serious: Yes (Hospitalization)
  Sender: FDA-Public Use
  Company Number: GB-MERCK-0510GBR00117

PATIENT
  Age: 73 Year
  Sex: Female
  Weight: 70 kg

DRUGS (10)
  1. VIOXX [Suspect]
     Indication: RHEUMATOID ARTHRITIS
     Route: 048
     Dates: start: 19991201, end: 20040901
  2. MORPHINE SULFATE [Concomitant]
     Indication: PAIN
     Route: 065
  3. ACETAMINOPHEN [Concomitant]
     Indication: PAIN
     Route: 065
  4. NITRAZEPAM [Concomitant]
     Indication: SLEEP DISORDER THERAPY
     Route: 065
  5. LISINOPRIL [Concomitant]
     Indication: HYPERTENSION
     Route: 065
  6. DILTIAZEM HYDROCHLORIDE [Concomitant]
     Indication: HYPERTENSION
     Route: 065
  7. FOLIC ACID [Concomitant]
     Indication: MINERAL SUPPLEMENTATION
     Route: 065
  8. PREDNISONE [Concomitant]
     Indication: ARTHRITIS
     Route: 065
  9. METHOTREXATE [Concomitant]
     Indication: ARTHRITIS
     Route: 065
  10. AMITRIPTYLINE HYDROCHLORIDE [Concomitant]
     Indication: DEPRESSION
     Route: 065

REACTIONS (2)
  - ACUTE MYOCARDIAL INFARCTION [None]
  - MYOCARDIAL INFARCTION [None]
